FAERS Safety Report 11591046 (Version 4)
Quarter: 2018Q3

REPORT INFORMATION
  Report Type: Spontaneous
  Country: GB (occurrence: GB)
  Receive Date: 20151003
  Receipt Date: 20180718
  Transmission Date: 20181010
  Serious: Yes (Hospitalization, Other)
  Sender: FDA-Public Use
  Company Number: GB-AUROBINDO-AUR-APL-2015-08617

PATIENT
  Age: 71 Year
  Sex: Female
  Weight: 66.8 kg

DRUGS (25)
  1. CYCLIZINE [Concomitant]
     Active Substance: CYCLIZINE
     Indication: VOMITING
  2. LISINOPRIL. [Suspect]
     Active Substance: LISINOPRIL
     Dosage: 10 MILLIGRAM, ONCE A DAY
     Route: 048
     Dates: end: 20150704
  3. CYCLIZINE [Concomitant]
     Active Substance: CYCLIZINE
     Indication: NAUSEA
     Dosage: 150 MG, DAILY, AS NEEDED
     Route: 065
     Dates: end: 20150709
  4. LOPERAMIDE [Concomitant]
     Active Substance: LOPERAMIDE
     Indication: DIARRHOEA
     Dosage: 16 MG, DAILY, AS NEEDED
     Route: 065
     Dates: end: 20150709
  5. FUROSEMIDE. [Concomitant]
     Active Substance: FUROSEMIDE
     Indication: PULMONARY ARTERIAL HYPERTENSION
     Dosage: 40 MILLIGRAM, ONCE A DAY
     Route: 065
     Dates: start: 20150427
  6. ALLOPURINOL. [Concomitant]
     Active Substance: ALLOPURINOL
     Indication: GOUT
  7. BENDROFLUMETHIAZIDE [Concomitant]
     Active Substance: BENDROFLUMETHIAZIDE
     Indication: HYPERTENSION
     Dosage: 2.5 MILLIGRAM
     Route: 065
  8. BENDROFLUMETHIAZIDE [Concomitant]
     Active Substance: BENDROFLUMETHIAZIDE
     Dosage: 2.5 MILLIGRAM
     Route: 065
  9. CEFALEXIN [Concomitant]
     Active Substance: CEPHALEXIN
     Indication: PROPHYLAXIS
     Dosage: 125 MG, DAILY
     Route: 065
  10. TINZAPARIN [Concomitant]
     Active Substance: TINZAPARIN
     Indication: PROPHYLAXIS
     Dosage: 3500 U, DAILY
     Route: 065
  11. PARACETAMOL [Concomitant]
     Active Substance: ACETAMINOPHEN
     Indication: PAIN
     Dosage: 4 G, DAILY, AS NEEDED
     Route: 065
     Dates: end: 20150709
  12. LISINOPRIL. [Suspect]
     Active Substance: LISINOPRIL
     Dosage: 10 MILLIGRAM
     Route: 048
     Dates: start: 2015, end: 20150704
  13. NIFEDIPINE. [Suspect]
     Active Substance: NIFEDIPINE
     Indication: HYPERTENSION
     Dosage: 20 MG, QD
     Route: 048
     Dates: end: 20150704
  14. TREPROSTINIL [Suspect]
     Active Substance: TREPROSTINIL
     Indication: PULMONARY ARTERIAL HYPERTENSION
     Dosage: 13.5 MILLIGRAM, 3 TIMES A DAY
     Route: 048
     Dates: start: 20150112
  15. OMEPRAZOLE. [Concomitant]
     Active Substance: OMEPRAZOLE
     Dosage: ()
  16. NAPROXEN. [Suspect]
     Active Substance: NAPROXEN
     Dosage: 1000 MG, QD
     Route: 065
     Dates: start: 20150521, end: 20150528
  17. OMEPRAZOLE. [Concomitant]
     Active Substance: OMEPRAZOLE
     Indication: PROPHYLAXIS
     Dosage: 40 MILLIGRAM, ONCE A DAY
     Route: 065
     Dates: start: 20150219
  18. TINZAPARIN [Concomitant]
     Active Substance: TINZAPARIN
     Dosage: 3500 UNITS TOTAL DAILY DOSE ()
     Route: 065
  19. LISINOPRIL. [Suspect]
     Active Substance: LISINOPRIL
     Indication: HYPERTENSION
     Dosage: 20 MILLIGRAM, TWO TIMES A DAY
     Route: 048
     Dates: end: 20150610
  20. LISINOPRIL. [Suspect]
     Active Substance: LISINOPRIL
     Dosage: 2.5 MILLIGRAM, ONCE A DAY
     Route: 048
     Dates: start: 20150708
  21. NAPROXEN. [Suspect]
     Active Substance: NAPROXEN
     Indication: GOUT
     Dosage: 1000 MG, QD
     Route: 065
     Dates: start: 20150624, end: 20150703
  22. ALLOPURINOL. [Concomitant]
     Active Substance: ALLOPURINOL
     Indication: PULMONARY ARTERIAL HYPERTENSION
     Dosage: 100 MILLIGRAM, ONCE A DAY
     Route: 065
     Dates: start: 20150601
  23. OMEPRAZOLE. [Concomitant]
     Active Substance: OMEPRAZOLE
     Indication: PULMONARY ARTERIAL HYPERTENSION
     Dosage: UNK ()
     Route: 065
  24. SILDENAFIL. [Concomitant]
     Active Substance: SILDENAFIL
     Indication: PULMONARY ARTERIAL HYPERTENSION
     Dosage: 75 MILLIGRAM, ONCE A DAY
     Route: 065
     Dates: start: 20140522
  25. CEFALEXIN [Concomitant]
     Active Substance: CEPHALEXIN
     Dosage: 125 MG, QD
     Route: 065

REACTIONS (5)
  - Oedema peripheral [Recovered/Resolved]
  - Drug ineffective [Unknown]
  - Dizziness [Unknown]
  - Blood uric acid increased [Unknown]
  - Acute kidney injury [Recovered/Resolved]

NARRATIVE: CASE EVENT DATE: 20150701
